FAERS Safety Report 9863530 (Version 2)
Quarter: 2014Q1

REPORT INFORMATION
  Report Type: Report from Study
  Country: US (occurrence: US)
  Receive Date: 20140203
  Receipt Date: 20140324
  Transmission Date: 20141002
  Serious: Yes (Death)
  Sender: FDA-Public Use
  Company Number: US-ACTELION-A-NJ2014-94292

PATIENT
  Age: 80 Year
  Sex: Female

DRUGS (3)
  1. TRACLEER [Suspect]
     Indication: PULMONARY ARTERIAL HYPERTENSION
     Route: 048
  2. SILDENAFIL [Concomitant]
  3. ADCIRCA [Concomitant]

REACTIONS (4)
  - Cerebrovascular accident [Fatal]
  - Hemiparesis [Fatal]
  - Unresponsive to stimuli [Fatal]
  - Disease complication [Fatal]
